FAERS Safety Report 4661810-9 (Version None)
Quarter: 2005Q2

REPORT INFORMATION
  Report Type: 
  Country: None (occurrence: None)
  Receive Date: 20050511
  Receipt Date: 20050511
  Transmission Date: 20051028
  Serious: Yes (Hospitalization)
  Sender: FDA-Public Use
  Company Number: None

PATIENT
  Age: 56 Year
  Sex: Male

DRUGS (2)
  1. ETOPOSIDE [Suspect]
     Dosage: 200 MG QD
     Dates: start: 20050308
  2. CISPLATIN [Suspect]
     Dosage: 160 MG [ONCE)
     Dates: start: 20050308

REACTIONS (1)
  - NEUTROPENIA [None]
